FAERS Safety Report 5270097-8 (Version None)
Quarter: 2007Q1

REPORT INFORMATION
  Report Type: 
  Country: None (occurrence: None)
  Receive Date: 20070320
  Receipt Date: 20070307
  Transmission Date: 20070707
  Serious: Yes (Other)
  Sender: FDA-Public Use
  Company Number: PHBS2007BR04185

PATIENT
  Age: 83 Year
  Sex: Male
  Weight: 78 kg

DRUGS (4)
  1. FORASEQ [Suspect]
     Indication: EMPHYSEMA
     Dosage: 24/800MCG PER DAY
  2. FORASEQ [Suspect]
     Dosage: 36/1200MCG PER DAY
     Dates: start: 20070201
  3. STUGERON [Concomitant]
     Indication: LABYRINTHITIS
     Dosage: 75 MG, BID
     Route: 048
  4. DUOVENT [Concomitant]
     Indication: EMPHYSEMA
     Route: 065

REACTIONS (3)
  - HAEMATOMA [None]
  - INFARCTION [None]
  - MYOCARDIAL INFARCTION [None]
